FAERS Safety Report 18273558 (Version 2)
Quarter: 2020Q3

REPORT INFORMATION
  Report Type: Spontaneous
  Country: CA (occurrence: CA)
  Receive Date: 20200916
  Receipt Date: 20200928
  Transmission Date: 20201103
  Serious: Yes (Hospitalization, Other)
  Sender: FDA-Public Use
  Company Number: CA-TEVA-2019-CA-1067903

PATIENT
  Age: 34 Year
  Sex: Female

DRUGS (2)
  1. METHOTREXATE. [Suspect]
     Active Substance: METHOTREXATE
     Indication: ECTOPIC PREGNANCY
     Dosage: 2 DOSES SYSTEMIC
     Route: 065
  2. POTASSIUM CHLORIDE. [Suspect]
     Active Substance: POTASSIUM CHLORIDE
     Indication: ECTOPIC PREGNANCY
     Dosage: RECEIVED 2 DOSES OF INTERGESTATIONAL POTASSIUM CHLORIDE
     Route: 065

REACTIONS (4)
  - Myelosuppression [Unknown]
  - Drug interaction [Unknown]
  - Vascular pseudoaneurysm [Unknown]
  - Vaginal haemorrhage [Recovering/Resolving]
